FAERS Safety Report 12919845 (Version 1)
Quarter: 2016Q4

REPORT INFORMATION
  Report Type: Spontaneous
  Country: CH (occurrence: CH)
  Receive Date: 20161108
  Receipt Date: 20161108
  Transmission Date: 20170207
  Serious: Yes (Other)
  Sender: FDA-Public Use
  Company Number: CH-SUN PHARMACEUTICAL INDUSTRIES LTD-2016RR-127279

PATIENT
  Age: 18 Year
  Sex: Male

DRUGS (3)
  1. LYSERGIDE [Interacting]
     Active Substance: LYSERGIDE
     Indication: PRODUCT USED FOR UNKNOWN INDICATION
     Route: 065
  2. ISOTRETINOIN [Suspect]
     Active Substance: ISOTRETINOIN
     Indication: ACNE
     Dosage: 0.5 MG/KG
     Route: 065
  3. ISOTRETINOIN [Interacting]
     Active Substance: ISOTRETINOIN
     Dosage: 1 MG/KG
     Route: 065

REACTIONS (2)
  - Drug interaction [Not Recovered/Not Resolved]
  - Mental disorder [Not Recovered/Not Resolved]
